FAERS Safety Report 7765201-3 (Version None)
Quarter: 2011Q3

REPORT INFORMATION
  Report Type: 
  Country: None (occurrence: None)
  Receive Date: 20110921
  Receipt Date: 20110916
  Transmission Date: 20111222
  Serious: Yes (Hospitalization)
  Sender: FDA-Public Use
  Company Number: US-GLAXOSMITHKLINE-A0841712A

PATIENT
  Age: 63 Year
  Sex: Female
  Weight: 75 kg

DRUGS (2)
  1. AVANDIA [Suspect]
     Indication: DIABETES MELLITUS
     Dosage: 2MG PER DAY
     Route: 048
     Dates: start: 20051020, end: 20070501
  2. AVANDAMET [Suspect]
     Indication: DIABETES MELLITUS
     Route: 048
     Dates: start: 20050801, end: 20051001

REACTIONS (7)
  - FATIGUE [None]
  - CORONARY ARTERY DISEASE [None]
  - SCAR [None]
  - ATRIAL FIBRILLATION [None]
  - PALPITATIONS [None]
  - ACUTE MYOCARDIAL INFARCTION [None]
  - MITRAL VALVE DISEASE [None]
